FAERS Safety Report 20866893 (Version 1)
Quarter: 2022Q2

REPORT INFORMATION
  Report Type: Spontaneous
  Country: DE (occurrence: DE)
  Receive Date: 20220524
  Receipt Date: 20220524
  Transmission Date: 20220721
  Serious: Yes (Other)
  Sender: FDA-Public Use
  Company Number: None

PATIENT
  Age: 83 Year
  Sex: Male
  Weight: 86 kg

DRUGS (15)
  1. ACYCLOVIR [Suspect]
     Active Substance: ACYCLOVIR
     Indication: Product used for unknown indication
     Dosage: 200 MILLIGRAM, BID (1-0-1)
  2. SULFAMETHOXAZOLE\TRIMETHOPRIM [Suspect]
     Active Substance: SULFAMETHOXAZOLE\TRIMETHOPRIM
     Indication: Prophylaxis
     Dosage: 960 MILLIGRAM Q3W(7-MALIGE ANWENDUNG3/WOCHE 960 MG)
     Dates: start: 20220404, end: 20220418
  3. CLOPIDOGREL DENK [Concomitant]
     Dosage: POSSIBLY AGAIN
  4. DARATUMUMAB [Concomitant]
     Active Substance: DARATUMUMAB
     Dosage: ONCE A WEEK
  5. PANTOPRAZOLE SODIUM [Concomitant]
     Active Substance: PANTOPRAZOLE SODIUM
     Dosage: 40 MILLIGRAM, QD (1-0-0)
  6. CANDESARTAN [Concomitant]
     Active Substance: CANDESARTAN
     Indication: Blood pressure measurement
     Dosage: 1.5 DOSAGE FORM, QD (1-0-0.5-0)
  7. ROSUVASTATIN [Concomitant]
     Active Substance: ROSUVASTATIN
     Indication: Blood cholesterol abnormal
     Dosage: 20 MILLIGRAM, QD (0-0-1-0)
  8. BETAVERT N [Concomitant]
     Dosage: 0.5 DOSAGE FORM, QD (0.5-0-0-0)
  9. LENALIDOMIDE [Concomitant]
     Active Substance: LENALIDOMIDE
     Indication: Plasmacytoma
     Dosage: 15 MILLIGRAM (0-0-1 (ALLE 2 TAGE))
  10. ASPIRIN [Concomitant]
     Active Substance: ASPIRIN
     Indication: Anticoagulant therapy
     Dosage: 100 MILLIGRAM, QD (1-0-0-0)
  11. RABEPRAZOLE [Concomitant]
     Active Substance: RABEPRAZOLE
     Dosage: UNK
  12. DIMENHYDRINATE [Concomitant]
     Active Substance: DIMENHYDRINATE
     Dosage: (50 MG B.BED.  )
  13. ALFUZOSIN STADA [Concomitant]
     Dosage: UNK
  14. DEXAMETHASONE [Concomitant]
     Active Substance: DEXAMETHASONE
     Dosage: 16 MILLIGRAM, QW (ONCE A WEEK)
  15. HERBALS [Concomitant]
     Active Substance: HERBALS
     Indication: Prostatic disorder
     Dosage: 1 DOSAGE FORM, QD (1-0-0-0)

REACTIONS (4)
  - Photosensitivity reaction [Unknown]
  - Skin swelling [Recovered/Resolved]
  - Pruritus [Recovered/Resolved]
  - Hypersensitivity [Recovered/Resolved]

NARRATIVE: CASE EVENT DATE: 20220414
